FAERS Safety Report 8410255-4 (Version None)
Quarter: 2012Q2

REPORT INFORMATION
  Report Type: 
  Country: None (occurrence: None)
  Receive Date: 20120605
  Receipt Date: 20120531
  Transmission Date: 20120825
  Serious: Yes (Other)
  Sender: FDA-Public Use
  Company Number: PHEH2011US009377

PATIENT
  Sex: Female
  Weight: 52.154 kg

DRUGS (3)
  1. BONIVA [Concomitant]
  2. GILENYA [Suspect]
     Indication: MULTIPLE SCLEROSIS
     Dosage: 0.5 MG, QD
     Route: 048
     Dates: start: 20110504, end: 20120518
  3. ZOLPIDEM [Concomitant]

REACTIONS (8)
  - DYSURIA [None]
  - GAIT DISTURBANCE [None]
  - BALANCE DISORDER [None]
  - DECREASED APPETITE [None]
  - LIVER FUNCTION TEST ABNORMAL [None]
  - WEIGHT DECREASED [None]
  - BLOOD URINE PRESENT [None]
  - FACIAL PAIN [None]
